FAERS Safety Report 8572062-1 (Version None)
Quarter: 2012Q3

REPORT INFORMATION
  Report Type: 
  Country: None (occurrence: None)
  Receive Date: 20120806
  Receipt Date: 20120727
  Transmission Date: 20120928
  Serious: Yes (Hospitalization, Other)
  Sender: FDA-Public Use
  Company Number: US-009507513-1012USA02520

PATIENT

DRUGS (9)
  1. FOSAMAX [Suspect]
     Indication: OSTEOPOROSIS PROPHYLAXIS
     Dosage: 70 MG, QW
     Route: 048
     Dates: start: 20020420, end: 20070525
  2. FOSAMAX [Suspect]
     Dosage: 70 MG, UNK
     Route: 048
     Dates: start: 20090101, end: 20100801
  3. CALCIUM (UNSPECIFIED) [Concomitant]
     Dates: start: 19810101
  4. ASCORBIC ACID [Concomitant]
     Dates: start: 19810101
  5. FOSAMAX [Suspect]
     Indication: OSTEOPENIA
  6. FOSAMAX PLUS D [Suspect]
     Indication: OSTEOPOROSIS PROPHYLAXIS
     Dosage: 70/2800 MG, QW
     Route: 048
     Dates: start: 20070623
  7. FOSAMAX PLUS D [Suspect]
     Indication: OSTEOPENIA
  8. FOSAMAX [Suspect]
  9. VITAMIN D [Concomitant]
     Dates: start: 19810101

REACTIONS (21)
  - DEVICE FAILURE [None]
  - TENDONITIS [None]
  - SPINAL COMPRESSION FRACTURE [None]
  - ANAEMIA [None]
  - BURSITIS [None]
  - BRONCHIECTASIS [None]
  - RIB FRACTURE [None]
  - LOW TURNOVER OSTEOPATHY [None]
  - TOOTH DISORDER [None]
  - SLEEP DISORDER [None]
  - CHOLELITHIASIS [None]
  - MUSCULOSKELETAL DISORDER [None]
  - OSTEOARTHRITIS [None]
  - MYOCARDIAL INFARCTION [None]
  - FALL [None]
  - URINARY TRACT INFECTION [None]
  - BLOOD PRESSURE INADEQUATELY CONTROLLED [None]
  - CLAVICLE FRACTURE [None]
  - FEMUR FRACTURE [None]
  - TIBIA FRACTURE [None]
  - LUNG DISORDER [None]
